FAERS Safety Report 8855121 (Version 1)
Quarter: 2012Q4

REPORT INFORMATION
  Report Type: 
  Country: US (occurrence: US)
  Receive Date: 20121023
  Receipt Date: 20121023
  Transmission Date: 20130627
  Serious: No
  Sender: FDA-Public Use
  Company Number: US-VERTEX PHARMACEUTICAL INC.-2012-023018

PATIENT
  Sex: Male

DRUGS (8)
  1. VX-950 [Suspect]
     Indication: HEPATITIS C
     Dosage: 750 mg, tid
     Route: 048
     Dates: start: 2012
  2. RIBASPHERE [Concomitant]
     Indication: HEPATITIS C
     Dosage: 600 mg, bid
     Dates: start: 2012
  3. PEGASYS [Concomitant]
     Indication: HEPATITIS C
     Dosage: 180 ?g, UNK
     Route: 058
     Dates: start: 2012
  4. PROTONIX DR [Concomitant]
     Dosage: 40 mg, qd
  5. ONDANSETRON HCL [Concomitant]
     Dosage: 8 mg, prn
  6. METFORMIN HCL ER [Concomitant]
     Dosage: 500 mg, qd
  7. GLIPIZIDE ER [Concomitant]
     Dosage: 2.5 mg, qd
  8. SPIRIVA HANDIHALER [Concomitant]
     Dosage: 18 ?g, UNK

REACTIONS (1)
  - Tooth abscess [Unknown]
